FAERS Safety Report 5313220-9 (Version None)
Quarter: 2007Q2

REPORT INFORMATION
  Report Type: 
  Country: None (occurrence: None)
  Receive Date: 20070501
  Receipt Date: 20070425
  Transmission Date: 20071010
  Serious: Yes (Hospitalization)
  Sender: FDA-Public Use
  Company Number: FRWYE528625APR07

PATIENT
  Age: 45 Year
  Sex: Male

DRUGS (1)
  1. RHINADVIL [Suspect]
     Dosage: AT REQUEST
     Route: 048
     Dates: end: 20070216

REACTIONS (1)
  - CEREBRAL ISCHAEMIA [None]
